FAERS Safety Report 14461913 (Version 3)
Quarter: 2020Q1

REPORT INFORMATION
  Report Type: Other
  Country: US (occurrence: US)
  Receive Date: 20180130
  Receipt Date: 20200126
  Transmission Date: 20200409
  Serious: Yes (Disabling)
  Sender: FDA-Public Use
  Company Number: US-ACORDA-ACO_144272_2017

PATIENT
  Sex: Female
  Weight: 97.51 kg

DRUGS (2)
  1. AMPYRA [Suspect]
     Active Substance: DALFAMPRIDINE
     Indication: MULTIPLE SCLEROSIS
     Dosage: 10 MG, BID
     Route: 048
     Dates: start: 20160429, end: 201801
  2. AMPYRA [Suspect]
     Active Substance: DALFAMPRIDINE
     Indication: GAIT DISTURBANCE

REACTIONS (6)
  - Mobility decreased [Unknown]
  - Gait inability [Unknown]
  - Diarrhoea [Unknown]
  - Hypokinesia [Unknown]
  - Gait disturbance [Unknown]
  - Therapy cessation [Unknown]
